FAERS Safety Report 18875821 (Version 1)
Quarter: 2021Q1

REPORT INFORMATION
  Report Type: Spontaneous
  Country: SG (occurrence: SG)
  Receive Date: 20210210
  Receipt Date: 20210210
  Transmission Date: 20210420
  Serious: Yes (Other)
  Sender: FDA-Public Use
  Company Number: SG-SA-2021SA036260

PATIENT
  Age: 59 Year
  Sex: Female

DRUGS (1)
  1. OXALIPLATIN. [Suspect]
     Active Substance: OXALIPLATIN
     Dosage: UNK

REACTIONS (2)
  - Flushing [Unknown]
  - Dyspnoea [Unknown]

NARRATIVE: CASE EVENT DATE: 20201208
